FAERS Safety Report 6408559-X (Version None)
Quarter: 2009Q4

REPORT INFORMATION
  Report Type: 
  Country: None (occurrence: None)
  Receive Date: 20091019
  Receipt Date: 20091008
  Transmission Date: 20100525
  Serious: Yes (Hospitalization, Other)
  Sender: FDA-Public Use
  Company Number: 231385J09USA

PATIENT
  Age: 52 Year
  Sex: Female

DRUGS (3)
  1. REBIF [Suspect]
     Indication: MULTIPLE SCLEROSIS
     Dosage: 44 MCG, 3 IN 1 WEEKS, SUBCUTANEOUS
     Route: 058
     Dates: start: 20030331
  2. LISINOPRIL [Concomitant]
  3. HORMONE PATCH (HORMONES AND RELATED AGENTS) [Concomitant]

REACTIONS (9)
  - ANKLE FRACTURE [None]
  - COMPLEX REGIONAL PAIN SYNDROME [None]
  - FALL [None]
  - HEART RATE DECREASED [None]
  - JOINT SWELLING [None]
  - NERVE INJURY [None]
  - NEUROPATHY PERIPHERAL [None]
  - OEDEMA PERIPHERAL [None]
  - PAIN [None]
